FAERS Safety Report 6016892-9 (Version None)
Quarter: 2008Q4

REPORT INFORMATION
  Report Type: 
  Country: None (occurrence: None)
  Receive Date: 20081219
  Receipt Date: 20081205
  Transmission Date: 20090506
  Serious: Yes (Other)
  Sender: FDA-Public Use
  Company Number: SPV1-2008-00349

PATIENT
  Age: 7 Year
  Sex: Male
  Weight: 28 kg

DRUGS (1)
  1. IDURSULFASE (IDURSULFASE) CONCENTRATE FOR SOLUTION FOR INFUSION [Suspect]
     Indication: MUCOPOLYSACCHARIDOSIS II
     Dosage: 12 MG, 1X WEEK, IV DRIP
     Route: 041
     Dates: start: 20071227, end: 20081202

REACTIONS (7)
  - ANAPHYLACTIC REACTION [None]
  - ERYTHEMA [None]
  - INFUSION RELATED REACTION [None]
  - MOROSE [None]
  - PRURITUS [None]
  - SALIVARY HYPERSECRETION [None]
  - URTICARIA [None]
